FAERS Safety Report 4661214-9 (Version None)
Quarter: 2005Q2

REPORT INFORMATION
  Report Type: 
  Country: None (occurrence: None)
  Receive Date: 20050422
  Receipt Date: 20040813
  Transmission Date: 20051028
  Serious: Yes (Other)
  Sender: FDA-Public Use
  Company Number: 1781-063-6

PATIENT
  Age: 54 Year
  Sex: Female
  Weight: 72.5755 kg

DRUGS (5)
  1. DEXFERRUM [Suspect]
     Indication: ANAEMIA
     Dosage: 500MG FIRST DOSE
     Dates: start: 20030918
  2. VIOXX [Concomitant]
  3. TYLENOL (CAPLET) [Concomitant]
  4. PROTONIZ [Concomitant]
  5. PERCOCET [Concomitant]

REACTIONS (5)
  - BRADYCARDIA [None]
  - COMA [None]
  - DIZZINESS [None]
  - FLUSHING [None]
  - HYPERHIDROSIS [None]
